FAERS Safety Report 9513504 (Version 1)
Quarter: 2013Q3

REPORT INFORMATION
  Report Type: Spontaneous
  Country: US (occurrence: US)
  Receive Date: 20130910
  Receipt Date: 20130910
  Transmission Date: 20140515
  Serious: No
  Sender: FDA-Public Use
  Company Number: US-TARO-2013P1007941

PATIENT
  Age: 77 Year
  Sex: Female
  Weight: 92.08 kg

DRUGS (24)
  1. WARFARIN SODIUM TABLETS USP 4MG [Suspect]
     Route: 048
     Dates: start: 20110204, end: 20130607
  2. IMDUR [Concomitant]
  3. BUMETANIDE [Concomitant]
  4. METOPROLOL [Concomitant]
  5. LISINOPRIL [Concomitant]
  6. LOVASTATIN [Concomitant]
  7. FLUOXETINE [Concomitant]
  8. ALPRAZOLAM [Concomitant]
  9. COLCRYS [Concomitant]
  10. ALLOPURINOL [Concomitant]
  11. LEVOTHYROXINE [Concomitant]
  12. HYDROCORTISONE [Concomitant]
  13. CALCITRIOL [Concomitant]
  14. CALCIUM WITH VITAMIN D [Concomitant]
  15. CARAFATE [Concomitant]
  16. ACETAMINOPHEN [Concomitant]
  17. OMEPRAZOLE [Concomitant]
  18. CORTISPORIN 3.5-10000-1 [Concomitant]
  19. FLUTICASONE [Concomitant]
  20. VOLTAREN 1% GEL [Concomitant]
  21. CEFUROXIME [Concomitant]
  22. GUAIFENESIN ER [Concomitant]
  23. HYDROCODONE/ACETAMINOPHEN [Concomitant]
  24. PROAIR [Concomitant]

REACTIONS (2)
  - International normalised ratio decreased [Recovering/Resolving]
  - Product quality issue [Unknown]
